FAERS Safety Report 22184755 (Version 1)
Quarter: 2023Q2

REPORT INFORMATION
  Report Type: Spontaneous
  Country: US (occurrence: US)
  Receive Date: 20230407
  Receipt Date: 20230407
  Transmission Date: 20230721
  Serious: No
  Sender: FDA-Public Use
  Company Number: US-Melinta Therapeutics, LLC-US-MLNT-23-00046

PATIENT
  Sex: Female

DRUGS (4)
  1. KIMYRSA [Suspect]
     Active Substance: ORITAVANCIN DIPHOSPHATE
     Indication: Product used for unknown indication
     Dosage: NOT PROVIDED.
     Route: 041
  2. KIMYRSA [Suspect]
     Active Substance: ORITAVANCIN DIPHOSPHATE
     Dosage: THE PATIENT DID NOT RECEIVE THE LAST 40ML OF THE KIMYRSA DOSE.
     Route: 041
     Dates: start: 20230207, end: 20230207
  3. TYLENOL [Concomitant]
     Active Substance: ACETAMINOPHEN
     Indication: Premedication
     Dosage: 650 MG (AS REPORTED)
     Route: 065
     Dates: start: 20230207, end: 20230207
  4. BENADRYL [Concomitant]
     Active Substance: DIPHENHYDRAMINE HYDROCHLORIDE
     Indication: Premedication
     Route: 065
     Dates: start: 20230207, end: 20230207

REACTIONS (7)
  - Pain [Unknown]
  - Drug hypersensitivity [Recovered/Resolved]
  - Rash [Recovered/Resolved]
  - Pruritus [Unknown]
  - Erythema [Unknown]
  - Multiple use of single-use product [Unknown]
  - Incorrect product administration duration [Unknown]

NARRATIVE: CASE EVENT DATE: 20230207
